FAERS Safety Report 5830392-8 (Version None)
Quarter: 2008Q3

REPORT INFORMATION
  Report Type: 
  Country: None (occurrence: None)
  Receive Date: 20080801
  Receipt Date: 20080728
  Transmission Date: 20090109
  Serious: Yes (Other)
  Sender: FDA-Public Use
  Company Number: JP-SANOFI-SYNTHELABO-A01200808748

PATIENT
  Sex: Male

DRUGS (2)
  1. ASPIRIN [Concomitant]
     Indication: VASCULAR OCCLUSION
     Dosage: UNK
     Route: 065
  2. PLAVIX [Suspect]
     Indication: VASCULAR OCCLUSION
     Route: 048

REACTIONS (2)
  - GASTRIC CANCER [None]
  - GASTRIC ULCER [None]
